FAERS Safety Report 18799962 (Version 1)
Quarter: 2021Q1

REPORT INFORMATION
  Report Type: Spontaneous
  Country: US (occurrence: US)
  Receive Date: 20210128
  Receipt Date: 20210128
  Transmission Date: 20210419
  Serious: No
  Sender: FDA-Public Use
  Company Number: None

PATIENT
  Age: 56 Year
  Sex: Female
  Weight: 83.92 kg

DRUGS (1)
  1. ENBREL [Suspect]
     Active Substance: ETANERCEPT
     Indication: PSORIASIS
     Dosage: OTHER FREQUENCY:2X WK 72?96H APART; AS DIRECTED?
     Route: 058
     Dates: start: 202004

REACTIONS (3)
  - Pneumonia [None]
  - COVID-19 [None]
  - Therapy interrupted [None]
